FAERS Safety Report 5242126-9 (Version None)
Quarter: 2007Q1

REPORT INFORMATION
  Report Type: 
  Country: None (occurrence: None)
  Receive Date: 20070212
  Receipt Date: 20070131
  Transmission Date: 20070707
  Serious: Yes (Death, Hospitalization)
  Sender: FDA-Public Use
  Company Number: 07H-163-0311892-00

PATIENT
  Age: 39 Year
  Sex: Female
  Weight: 113.3993 kg

DRUGS (15)
  1. PRECEDEX [Suspect]
     Indication: SEDATION
     Dosage: 0.4/MCG/KG/HR, INTRAVENOUS
     Route: 042
     Dates: start: 20070130, end: 20070130
  2. BENADRYL [Concomitant]
  3. MIDAZOLAM HCL [Concomitant]
  4. PROPOFOL [Concomitant]
  5. SUCCINYLCHOLINE CHLORIDE [Concomitant]
  6. KETAMINE (KETAMINE) [Concomitant]
  7. ZEMURON [Concomitant]
  8. SEVOFLUORANE (SEVOFLURANE) [Concomitant]
  9. ENLON PLUS (ENLON-PLUS) [Concomitant]
  10. TRICOR [Concomitant]
  11. BENICAR [Concomitant]
  12. METFORMIN HCL [Concomitant]
  13. CRESTOR [Concomitant]
  14. EFFEXOR XR [Concomitant]
  15. WELLBUTRIN XL [Concomitant]

REACTIONS (5)
  - BRAIN STEM INFARCTION [None]
  - CARDIAC ARREST [None]
  - CEREBROVASCULAR ACCIDENT [None]
  - DYSARTHRIA [None]
  - SENSORY DISTURBANCE [None]
